FAERS Safety Report 10242835 (Version 1)
Quarter: 2014Q2

REPORT INFORMATION
  Report Type: Spontaneous
  Country: US (occurrence: US)
  Receive Date: 20140618
  Receipt Date: 20140618
  Transmission Date: 20141212
  Serious: No
  Sender: FDA-Public Use
  Company Number: US-ASTRAZENECA-2014SE40062

PATIENT
  Age: 62 Year
  Sex: Female
  Weight: 72.6 kg

DRUGS (14)
  1. PRILOSEC [Suspect]
     Indication: GASTROOESOPHAGEAL REFLUX DISEASE
     Route: 048
     Dates: start: 1994, end: 201405
  2. PRILOSEC [Suspect]
     Indication: GASTROOESOPHAGEAL REFLUX DISEASE
     Route: 048
     Dates: start: 201405, end: 201405
  3. PREVACID [Suspect]
     Route: 065
     Dates: start: 201405
  4. PROTONIX [Suspect]
     Route: 065
  5. VITAMIN B12 [Concomitant]
     Dosage: 500 MCG ONCE WEEKLY
     Route: 045
     Dates: start: 2012
  6. VITAMIN D [Concomitant]
     Indication: BONE DENSITY ABNORMAL
     Route: 048
  7. XYZAL [Concomitant]
     Indication: MULTIPLE ALLERGIES
     Route: 048
     Dates: start: 2012
  8. TIGAN [Concomitant]
     Indication: NAUSEA
     Route: 048
     Dates: start: 1998
  9. HYZAR [Concomitant]
     Indication: HYPERTENSION
     Dosage: ONE-HALF 100-25 MG DAILY
     Route: 048
  10. OMNARIS [Concomitant]
     Indication: MULTIPLE ALLERGIES
     Dosage: 2 - 3 SPRAYS PRN
     Route: 045
  11. PATANASE [Concomitant]
     Indication: MULTIPLE ALLERGIES
     Dosage: 2 - 3 SPRAYS PRN
     Route: 045
  12. VIVELLE DOT [Concomitant]
     Indication: HORMONE THERAPY
     Dosage: 0.1 MG TWICE WKLY
     Route: 061
     Dates: start: 1988
  13. QUESTRAN [Concomitant]
     Indication: DIARRHOEA
     Dates: start: 1998
  14. QUESTRAN [Concomitant]
     Indication: CROHN^S DISEASE
     Dates: start: 1998

REACTIONS (13)
  - Dysphagia [Unknown]
  - Oesophageal ulcer [Unknown]
  - Oral herpes [Unknown]
  - Herpes zoster [Unknown]
  - Gastrooesophageal reflux disease [Unknown]
  - Cough [Unknown]
  - Dyspnoea [Unknown]
  - Headache [Unknown]
  - Eructation [Unknown]
  - Diarrhoea [Unknown]
  - Mouth ulceration [Unknown]
  - Off label use [Unknown]
  - Drug ineffective [None]
